FAERS Safety Report 11748313 (Version 1)
Quarter: 2015Q4

REPORT INFORMATION
  Report Type: Spontaneous
  Country: US (occurrence: None)
  Receive Date: 20151116
  Receipt Date: 20151116
  Transmission Date: 20160304
  Serious: Yes (Hospitalization)
  Sender: FDA-Public Use
  Company Number: None

PATIENT
  Age: 68 Year
  Sex: Male
  Weight: 87.2 kg

DRUGS (1)
  1. TICE BCG [Suspect]
     Active Substance: BACILLUS CALMETTE-GUERIN SUBSTRAIN TICE LIVE ANTIGEN
     Dates: end: 20151001

REACTIONS (5)
  - Condition aggravated [None]
  - Pain [None]
  - Post procedural complication [None]
  - Swelling [None]
  - Endodontic procedure [None]

NARRATIVE: CASE EVENT DATE: 20151019
